FAERS Safety Report 11297737 (Version 1)
Quarter: 2015Q3

REPORT INFORMATION
  Report Type: Spontaneous
  Country: US (occurrence: US)
  Receive Date: 20150722
  Receipt Date: 20150722
  Transmission Date: 20151125
  Serious: No
  Sender: FDA-Public Use
  Company Number: US-ELI_LILLY_AND_COMPANY-US200910002510

PATIENT
  Sex: Female

DRUGS (3)
  1. DHEA [Concomitant]
     Active Substance: PRASTERONE
     Dates: end: 2009
  2. TESTOSTERONE. [Concomitant]
     Active Substance: TESTOSTERONE
     Dates: end: 2009
  3. HUMATROPE [Suspect]
     Active Substance: SOMATROPIN
     Dates: start: 200909

REACTIONS (1)
  - Swelling [Recovered/Resolved]

NARRATIVE: CASE EVENT DATE: 2009
